FAERS Safety Report 16341959 (Version 1)
Quarter: 2019Q2

REPORT INFORMATION
  Report Type: Spontaneous
  Country: US (occurrence: US)
  Receive Date: 20190521
  Receipt Date: 20190521
  Transmission Date: 20190711
  Serious: No
  Sender: FDA-Public Use
  Company Number: None

PATIENT
  Age: 32 Year
  Sex: Female
  Weight: 79.2 kg

DRUGS (2)
  1. LEVOFLOXACIN 750MG TABLETS [Suspect]
     Active Substance: LEVOFLOXACIN
     Indication: PNEUMONIA
     Dosage: ?          QUANTITY:1 TABLET(S);?
     Route: 048
     Dates: start: 20190517, end: 20190520
  2. LEVOFLOXACIN 750MG TABLETS [Suspect]
     Active Substance: LEVOFLOXACIN
     Indication: EAR INFECTION
     Dosage: ?          QUANTITY:1 TABLET(S);?
     Route: 048
     Dates: start: 20190517, end: 20190520

REACTIONS (4)
  - Insomnia [None]
  - Tendonitis [None]
  - Swelling [None]
  - Arthralgia [None]

NARRATIVE: CASE EVENT DATE: 20190519
